FAERS Safety Report 7065125-3 (Version None)
Quarter: 2010Q4

REPORT INFORMATION
  Report Type: 
  Country: None (occurrence: None)
  Receive Date: 20101027
  Receipt Date: 19931231
  Transmission Date: 20110411
  Serious: Yes (Death, Hospitalization)
  Sender: FDA-Public Use
  Company Number: FR-ROCHE-930500373001

PATIENT
  Age: 86 Year
  Sex: Female

DRUGS (5)
  1. ROCEPHIN [Suspect]
     Route: 030
  2. MONICOR L.P. [Concomitant]
     Route: 048
  3. TEMESTA [Concomitant]
     Route: 048
  4. NITRODERM [Concomitant]
     Indication: ANXIETY
     Route: 061
  5. POTASSIUM GLUCONATE TAB [Concomitant]
     Route: 065

REACTIONS (3)
  - CARDIAC FAILURE [None]
  - LEFT VENTRICULAR FAILURE [None]
  - THROMBOCYTOPENIA [None]
